FAERS Safety Report 17021961 (Version 1)
Quarter: 2019Q4

REPORT INFORMATION
  Report Type: Spontaneous
  Country: US (occurrence: US)
  Receive Date: 20191112
  Receipt Date: 20191112
  Transmission Date: 20200122
  Serious: Yes (Other)
  Sender: FDA-Public Use
  Company Number: US-JAZZ-2019-US-013085

PATIENT
  Sex: Male

DRUGS (3)
  1. MODAFINIL. [Concomitant]
     Active Substance: MODAFINIL
     Indication: PRODUCT USED FOR UNKNOWN INDICATION
     Dosage: UNK
     Route: 048
     Dates: start: 201804, end: 2018
  2. XYREM [Suspect]
     Active Substance: SODIUM OXYBATE
     Indication: NARCOLEPSY
     Dosage: DOSE AND FREQUENCY UNKNOWN
     Route: 048
     Dates: start: 201801, end: 201802
  3. XYREM [Suspect]
     Active Substance: SODIUM OXYBATE
     Dosage: DOSE AND FREQUENCY UNKNOWN
     Route: 048
     Dates: start: 201806, end: 201809

REACTIONS (6)
  - Personality change [Unknown]
  - Psychotic disorder [Unknown]
  - Cognitive disorder [Unknown]
  - Confusional state [Recovered/Resolved]
  - Memory impairment [Unknown]
  - Depression [Recovered/Resolved]

NARRATIVE: CASE EVENT DATE: 2018
